FAERS Safety Report 14760960 (Version 1)
Quarter: 2018Q2

REPORT INFORMATION
  Report Type: Spontaneous
  Country: US (occurrence: US)
  Receive Date: 20180415
  Receipt Date: 20180415
  Transmission Date: 20180711
  Serious: Yes (Other)
  Sender: FDA-Public Use
  Company Number: US-TEVA-2018-US-880118

PATIENT

DRUGS (1)
  1. AMPHETAMINE W/DEXTROAMPHETAMINE [Suspect]
     Active Substance: AMPHETAMINE SULFATE\DEXTROAMPHETAMINE
     Indication: ATTENTION DEFICIT/HYPERACTIVITY DISORDER
     Route: 065

REACTIONS (8)
  - Migraine [Unknown]
  - Blood pressure increased [Unknown]
  - Heart sounds abnormal [Unknown]
  - Flushing [Unknown]
  - Drug ineffective [Unknown]
  - Palpitations [Unknown]
  - Anxiety [Unknown]
  - Vision blurred [Unknown]
